FAERS Safety Report 11545406 (Version 3)
Quarter: 2016Q1

REPORT INFORMATION
  Report Type: Report from Study
  Country: US (occurrence: US)
  Receive Date: 20150924
  Receipt Date: 20160106
  Transmission Date: 20160525
  Serious: Yes (Hospitalization, Other)
  Sender: FDA-Public Use
  Company Number: US-AMGEN-USASP2015097915

PATIENT
  Age: 45 Year
  Sex: Female
  Weight: 82.54 kg

DRUGS (4)
  1. CYMBALTA [Concomitant]
     Active Substance: DULOXETINE HYDROCHLORIDE
     Dosage: UNK
  2. ENBREL [Suspect]
     Active Substance: ETANERCEPT
     Indication: PSORIATIC ARTHROPATHY
     Dosage: 25 MG, QWK
     Route: 058
     Dates: end: 201509
  3. FOLIC ACID. [Concomitant]
     Active Substance: FOLIC ACID
     Dosage: UNK
  4. METHOTREXATE [Concomitant]
     Active Substance: METHOTREXATE
     Indication: PSORIATIC ARTHROPATHY
     Dosage: 10 MG, UNK
     Route: 048

REACTIONS (4)
  - Lymphoma [Not Recovered/Not Resolved]
  - Inappropriate schedule of drug administration [Unknown]
  - Bronchioloalveolar carcinoma [Not Recovered/Not Resolved]
  - Abdominal mass [Unknown]

NARRATIVE: CASE EVENT DATE: 2015
